FAERS Safety Report 25465953 (Version 3)
Quarter: 2025Q3

REPORT INFORMATION
  Report Type: Spontaneous
  Country: EU (occurrence: EU)
  Receive Date: 20250623
  Receipt Date: 20250803
  Transmission Date: 20251021
  Serious: Yes (Other)
  Sender: ALEXION PHARMACEUTICALS
  Company Number: EU-AstraZeneca-CH-00894287A

PATIENT
  Age: 57 Year
  Sex: Male

DRUGS (3)
  1. IMFINZI [Suspect]
     Active Substance: DURVALUMAB
     Indication: Non-small cell lung cancer stage IIIA
     Dosage: UNK, Q4W
     Dates: start: 202404, end: 202501
  2. CARBOPLATIN [Suspect]
     Active Substance: CARBOPLATIN
     Route: 065
  3. PACLITAXEL [Suspect]
     Active Substance: PACLITAXEL
     Route: 065

REACTIONS (1)
  - Non-small cell lung cancer recurrent [Recovered/Resolved with Sequelae]

NARRATIVE: CASE EVENT DATE: 20250101
